FAERS Safety Report 8007035-0 (Version None)
Quarter: 2011Q4

REPORT INFORMATION
  Report Type: 
  Country: None (occurrence: None)
  Receive Date: 20111227
  Receipt Date: 20111220
  Transmission Date: 20120403
  Serious: Yes (Hospitalization, Other)
  Sender: FDA-Public Use
  Company Number: US-BRISTOL-MYERS SQUIBB COMPANY-15215619

PATIENT
  Age: 70 Year
  Sex: Female
  Weight: 76 kg

DRUGS (3)
  1. TAXOL [Suspect]
     Indication: NON-SMALL CELL LUNG CANCER
     Dosage: LAST DOSE=13JUL2010; 45MG/M2
     Route: 042
     Dates: start: 20100601
  2. CARBOPLATIN [Suspect]
     Indication: NON-SMALL CELL LUNG CANCER
     Dosage: LAST DOSE=13JUL2010; AUC2 IV DAYS8,15,22,29,36 AND 43
     Route: 042
     Dates: start: 20100601
  3. ERBITUX [Suspect]
     Indication: NON-SMALL CELL LUNG CANCER
     Dosage: LAST DOSE=13JUL2010;400MG/M2 IV DAY1, 250MG/M2
     Route: 042
     Dates: start: 20100601

REACTIONS (7)
  - DEHYDRATION [None]
  - NAUSEA [None]
  - VOMITING [None]
  - ANAEMIA [None]
  - DIARRHOEA [None]
  - URINARY TRACT INFECTION [None]
  - NEUTROPENIA [None]
